FAERS Safety Report 6592901-3 (Version None)
Quarter: 2010Q1

REPORT INFORMATION
  Report Type: 
  Country: None (occurrence: None)
  Receive Date: 20100222
  Receipt Date: 20100129
  Transmission Date: 20100710
  Serious: Yes (Other)
  Sender: FDA-Public Use
  Company Number: DE-BAYER-201015337GPV

PATIENT
  Age: 18 Year
  Sex: Female
  Weight: 60 kg

DRUGS (3)
  1. INTERFERON BETA-1B [Suspect]
     Indication: MULTIPLE SCLEROSIS
     Dosage: REGIMEN #1
     Route: 065
     Dates: start: 20030601, end: 20041201
  2. INTERFERON BETA-1B [Suspect]
     Dosage: REGIMEN #2
     Route: 065
     Dates: start: 20050201, end: 20050801
  3. INTERFERON BETA-1B [Suspect]
     Dosage: REGIMEN #3
     Route: 065
     Dates: start: 20070101

REACTIONS (3)
  - ABORTION SPONTANEOUS [None]
  - NO ADVERSE EVENT [None]
  - SENSORY DISTURBANCE [None]
